FAERS Safety Report 7320575-2 (Version None)
Quarter: 2011Q1

REPORT INFORMATION
  Report Type: 
  Country: None (occurrence: None)
  Receive Date: 20110215
  Receipt Date: 20110208
  Transmission Date: 20110831
  Serious: Yes (Life-Threatening, Other)
  Sender: FDA-Public Use
  Company Number: JHP201100029

PATIENT
  Age: 29 Year
  Sex: Female

DRUGS (11)
  1. PITOCIN [Suspect]
     Dosage: 10 IU IN 300 ML LACTATED RINGER'S SOLUTION ADMINISTERED OVER 2 MINUTES, INTRAVENOUS
     Route: 042
  2. NITROGLYCERIN [Concomitant]
  3. REMIFENTANIL (REMIFENTANIL) [Concomitant]
  4. SUCCINYLCHOLINE CHLORIDE [Concomitant]
  5. DIURETICS [Concomitant]
  6. ETOMIDATE [Concomitant]
  7. AMRINONE [Concomitant]
  8. SODIUM BICARBONATE [Concomitant]
  9. METARAMINOL BITARTRATE [Suspect]
     Indication: HYPOTENSION
     Dosage: 0.5 MG, 20.5 MG
  10. DOPAMINE [Concomitant]
  11. HYDROCORTISONE [Concomitant]

REACTIONS (6)
  - HYPOXIA [None]
  - DRUG EXPOSURE DURING PREGNANCY [None]
  - HEART RATE INCREASED [None]
  - CAESAREAN SECTION [None]
  - HYPOTENSION [None]
  - DRUG INTERACTION [None]
